FAERS Safety Report 17014600 (Version 1)
Quarter: 2019Q4

REPORT INFORMATION
  Report Type: Spontaneous
  Country: US (occurrence: US)
  Receive Date: 20191003
  Receipt Date: 20191003
  Transmission Date: 20200122
  Serious: Yes (Other)
  Sender: FDA-Public Use
  Company Number: None

PATIENT
  Age: 52 Year
  Sex: Female
  Weight: 104.33 kg

DRUGS (5)
  1. BENZTROPIC [Concomitant]
  2. BYSTOLIC [Concomitant]
     Active Substance: NEBIVOLOL HYDROCHLORIDE
  3. HALOPERIDOL. [Concomitant]
     Active Substance: HALOPERIDOL
  4. LORAZEPAM. [Concomitant]
     Active Substance: LORAZEPAM
  5. CARVEDILOL 12.5MG [Suspect]
     Active Substance: CARVEDILOL
     Indication: HEART RATE DECREASED
     Dosage: ?          QUANTITY:2 PILLS DAILY ;?
     Route: 048
     Dates: start: 20190626, end: 20190630

REACTIONS (2)
  - Grip strength decreased [None]
  - Hypoaesthesia [None]

NARRATIVE: CASE EVENT DATE: 20190630
